FAERS Safety Report 6314474-2 (Version None)
Quarter: 2009Q3

REPORT INFORMATION
  Report Type: 
  Country: None (occurrence: None)
  Receive Date: 20090817
  Receipt Date: 20090817
  Transmission Date: 20100115
  Serious: Yes (Other)
  Sender: FDA-Public Use
  Company Number: None

PATIENT
  Age: 62 Year
  Sex: Female
  Weight: 76.6579 kg

DRUGS (1)
  1. EXFORGE [Suspect]
     Indication: HYPERTENSION
     Dates: start: 20090727, end: 20090812

REACTIONS (5)
  - CARDIAC FLUTTER [None]
  - COUGH [None]
  - DYSPHAGIA [None]
  - INFLUENZA LIKE ILLNESS [None]
  - POLLAKIURIA [None]
